FAERS Safety Report 9862966 (Version 2)
Quarter: 2014Q1

REPORT INFORMATION
  Report Type: Spontaneous
  Country: US (occurrence: US)
  Receive Date: 20140203
  Receipt Date: 20140205
  Transmission Date: 20141002
  Serious: Yes (Other)
  Sender: FDA-Public Use
  Company Number: US-GALDERMA-US14000348

PATIENT
  Sex: Male

DRUGS (1)
  1. MIRVASO (BRIMONIDINE) TOPICAL GEL, 0.33% [Suspect]
     Dosage: 0.33%
     Route: 061

REACTIONS (3)
  - Conjunctival haemorrhage [Unknown]
  - Ocular hyperaemia [Unknown]
  - Eye irritation [Unknown]
